FAERS Safety Report 18565319 (Version 1)
Quarter: 2020Q4

REPORT INFORMATION
  Report Type: Spontaneous
  Country: US (occurrence: US)
  Receive Date: 20201201
  Receipt Date: 20201201
  Transmission Date: 20210114
  Serious: No
  Sender: FDA-Public Use
  Company Number: None

PATIENT
  Age: 19 Month
  Sex: Male
  Weight: 11.4 kg

DRUGS (2)
  1. SYNAGIS [Suspect]
     Active Substance: PALIVIZUMAB
     Indication: RESPIRATORY SYNCYTIAL VIRUS INFECTION
     Dosage: ?          OTHER FREQUENCY:28 DAYS;?
     Route: 030
     Dates: start: 20201110
  2. SYNAGIS [Concomitant]
     Active Substance: PALIVIZUMAB
     Dates: start: 20201110

REACTIONS (4)
  - Rhinorrhoea [None]
  - Insomnia [None]
  - Secretion discharge [None]
  - Salivary hypersecretion [None]

NARRATIVE: CASE EVENT DATE: 20201201
